FAERS Safety Report 4429977-5 (Version None)
Quarter: 2004Q3

REPORT INFORMATION
  Report Type: 
  Country: None (occurrence: None)
  Receive Date: 20040818
  Receipt Date: 20040319
  Transmission Date: 20050211
  Serious: Yes (Life-Threatening, Other)
  Sender: FDA-Public Use
  Company Number: 2004S1000345

PATIENT
  Age: 13 Year
  Sex: Female
  Weight: 45.3597 kg

DRUGS (2)
  1. AMITRIPTYLINE HCL [Suspect]
     Indication: MIGRAINE
     Dosage: 10 MG BID AND 10 MG Q HS, ORAL
     Route: 048
     Dates: start: 20030101
  2. LORATADINE [Concomitant]

REACTIONS (3)
  - ANXIETY [None]
  - DEPRESSION [None]
  - ELECTROCARDIOGRAM QT PROLONGED [None]
